FAERS Safety Report 8994890 (Version 1)
Quarter: 2012Q4

REPORT INFORMATION
  Report Type: Spontaneous
  Country: GB (occurrence: None)
  Receive Date: 20121221
  Receipt Date: 20121221
  Transmission Date: 20130627
  Serious: Yes (Disabling)
  Sender: FDA-Public Use
  Company Number: AUR-APL-2012-05380

PATIENT
  Age: 39 Year
  Sex: Female
  Weight: 70 kg

DRUGS (7)
  1. LAMOTRIGINE (LAMOTRIGINE) [Suspect]
     Indication: DRUG USE FOR UNKNOWN INDICATION
     Dates: start: 20120903
  2. CETIRIZINE (CETIRIZINE) [Concomitant]
  3. CLOBETASONE [Concomitant]
  4. AMOXICILLIN\CLAVULANATE POTASSIUM [Concomitant]
  5. FLUCLOXACILLIN (FLUCLOXACILLIN) [Concomitant]
  6. FUSIDIC ACID (FUSIDIC ACID) [Concomitant]
  7. ULTRABASE (PARAFFIN, LIQUID) [Concomitant]

REACTIONS (2)
  - Scab [None]
  - Rash generalised [None]
